FAERS Safety Report 19570103 (Version 1)
Quarter: 2021Q3

REPORT INFORMATION
  Report Type: Spontaneous
  Country: US (occurrence: US)
  Receive Date: 20210715
  Receipt Date: 20210715
  Transmission Date: 20211014
  Serious: Yes (Other)
  Sender: FDA-Public Use
  Company Number: US-BAUSCH-BL-2021-023578

PATIENT
  Sex: Male

DRUGS (1)
  1. APRISO [Suspect]
     Active Substance: MESALAMINE
     Indication: PRODUCT USED FOR UNKNOWN INDICATION
     Dosage: ABOUT 6 MONTHS
     Route: 065

REACTIONS (4)
  - Abdominal pain [Unknown]
  - Flatulence [Unknown]
  - Weight increased [Unknown]
  - Haematochezia [Unknown]
